FAERS Safety Report 23170309 (Version 1)
Quarter: 2023Q4

REPORT INFORMATION
  Report Type: Report from Study
  Country: CA (occurrence: CA)
  Receive Date: 20231110
  Receipt Date: 20231110
  Transmission Date: 20240110
  Serious: Yes (Death)
  Sender: FDA-Public Use
  Company Number: CA-MELINTA THERAPEUTICS, LLC-CA-MLNT-23-00624

PATIENT

DRUGS (1)
  1. VABOMERE [Suspect]
     Active Substance: MEROPENEM\VABORBACTAM
     Indication: Klebsiella infection
     Dosage: 24X2G VIALS
     Route: 042
     Dates: end: 20231031

REACTIONS (1)
  - Disease progression [Fatal]
